FAERS Safety Report 21264361 (Version 1)
Quarter: 2022Q3

REPORT INFORMATION
  Report Type: Spontaneous
  Country: US (occurrence: US)
  Receive Date: 20220829
  Receipt Date: 20220829
  Transmission Date: 20221027
  Serious: No
  Sender: FDA-Public Use
  Company Number: US-BRISTOL-MYERS SQUIBB COMPANY-2022-095581

PATIENT
  Age: 69 Year
  Sex: Female
  Weight: 87.996 kg

DRUGS (1)
  1. REVLIMID [Suspect]
     Active Substance: LENALIDOMIDE
     Indication: Plasma cell myeloma
     Dosage: FREQ: DAILY ? 21 DAY
     Route: 048
     Dates: start: 20220728, end: 20220817

REACTIONS (4)
  - Cystitis [Recovering/Resolving]
  - Mucosal inflammation [Recovering/Resolving]
  - Oropharyngeal pain [Recovering/Resolving]
  - Renal disorder [Recovering/Resolving]

NARRATIVE: CASE EVENT DATE: 20220817
